FAERS Safety Report 14647644 (Version 1)
Quarter: 2018Q1

REPORT INFORMATION
  Report Type: Spontaneous
  Country: JP (occurrence: JP)
  Receive Date: 20180316
  Receipt Date: 20180316
  Transmission Date: 20180509
  Serious: Yes (Life-Threatening, Other)
  Sender: FDA-Public Use
  Company Number: JP-GLAXOSMITHKLINE-JP2018JPN042264

PATIENT
  Age: 72 Year
  Sex: Male
  Weight: 72 kg

DRUGS (14)
  1. AVOLVE [Suspect]
     Active Substance: DUTASTERIDE
     Indication: PROSTATOMEGALY
     Dosage: 0.5 MG, QD
     Route: 048
     Dates: start: 201306
  2. ROSUVASTATIN CALCIUM. [Concomitant]
     Active Substance: ROSUVASTATIN CALCIUM
     Dosage: UNK
  3. MOHRUS [Concomitant]
     Active Substance: KETOPROFEN
     Dosage: UNK
  4. TENELIA [Concomitant]
     Active Substance: TENELIGLIPTIN
     Dosage: UNK
  5. VOLTAREN [Concomitant]
     Active Substance: DICLOFENAC SODIUM
     Dosage: UNK
  6. MINEBASE [Concomitant]
     Dosage: UNK
  7. ARIMIDEX TABLETS [Concomitant]
     Indication: BREAST CANCER MALE
     Dosage: 1 MG, QD
     Dates: start: 20080626, end: 20130604
  8. PA TABLETS [Concomitant]
     Active Substance: UNSPECIFIED INGREDIENT
     Dosage: UNK
  9. AMLODIPINE [Concomitant]
     Active Substance: AMLODIPINE BESYLATE
     Dosage: UNK
  10. IBUPROFEN. [Concomitant]
     Active Substance: IBUPROFEN
     Dosage: UNK
  11. AVOLVE [Suspect]
     Active Substance: DUTASTERIDE
     Indication: DYSURIA
  12. FLIVAS OD [Suspect]
     Active Substance: NAFTOPIDIL
     Indication: DYSURIA
  13. FLIVAS OD [Suspect]
     Active Substance: NAFTOPIDIL
     Indication: PROSTATOMEGALY
     Dosage: 75 MG, QD
     Route: 048
  14. ASVERIN TABLETS [Concomitant]
     Dosage: UNK
     Dates: start: 20171226, end: 20171230

REACTIONS (4)
  - Lymphadenopathy [Unknown]
  - Breast cancer [Recovering/Resolving]
  - Breast cancer recurrent [Recovering/Resolving]
  - Metastases to lymph nodes [None]

NARRATIVE: CASE EVENT DATE: 20180123
